FAERS Safety Report 5543598-2 (Version None)
Quarter: 2007Q4

REPORT INFORMATION
  Report Type: 
  Country: None (occurrence: None)
  Receive Date: 20071206
  Receipt Date: 20071203
  Transmission Date: 20080405
  Serious: Yes (Hospitalization, Other)
  Sender: FDA-Public Use
  Company Number: 2007SP024261

PATIENT
  Age: 71 Year
  Sex: Male
  Weight: 96.8 kg

DRUGS (1)
  1. TEMODAR [Suspect]
     Indication: GLIOBLASTOMA MULTIFORME
     Dosage: 165 MG,QD;PO
     Route: 048
     Dates: start: 20071030, end: 20071128

REACTIONS (4)
  - ASTHENIA [None]
  - CHRONIC OBSTRUCTIVE PULMONARY DISEASE [None]
  - LYMPHOPENIA [None]
  - PULMONARY EMBOLISM [None]
